FAERS Safety Report 20977856 (Version 2)
Quarter: 2022Q4

REPORT INFORMATION
  Report Type: Spontaneous
  Country: US (occurrence: US)
  Receive Date: 20220618
  Receipt Date: 20221019
  Transmission Date: 20230113
  Serious: No
  Sender: FDA-Public Use
  Company Number: US-BRISTOL-MYERS SQUIBB COMPANY-2022-053674

PATIENT
  Age: 82 Year
  Sex: Female

DRUGS (1)
  1. POMALYST [Suspect]
     Active Substance: POMALIDOMIDE
     Indication: Plasma cell myeloma
     Dosage: FREQUENCY : TAKE 1 CAPSULE (4MG) BY MOUTH EVERY DAY FOR 21 DAYS THEN 7 DAYS OFF
     Route: 048
     Dates: start: 20210928

REACTIONS (2)
  - Fatigue [Not Recovered/Not Resolved]
  - Product dose omission issue [Unknown]
